FAERS Safety Report 5780504-X (Version None)
Quarter: 2008Q2

REPORT INFORMATION
  Report Type: 
  Country: None (occurrence: None)
  Receive Date: 20080620
  Receipt Date: 20080611
  Transmission Date: 20081010
  Serious: Yes (Hospitalization, Other)
  Sender: FDA-Public Use
  Company Number: US-JNJFOC-20061104231

PATIENT
  Sex: Female
  Weight: 47.6 kg

DRUGS (9)
  1. REMICADE [Suspect]
     Dosage: MAINTENANCE
     Route: 042
  2. REMICADE [Suspect]
     Indication: CROHN'S DISEASE
     Dosage: INDUCTION
     Route: 042
  3. PREDNISONE TAB [Concomitant]
  4. PREDNISONE TAB [Concomitant]
  5. MERCAPTOPURINE [Concomitant]
  6. MERCAPTOPURINE [Concomitant]
  7. PREVACID [Concomitant]
  8. PENTASA [Concomitant]
  9. BUDESONIDE [Concomitant]

REACTIONS (1)
  - HODGKIN'S DISEASE STAGE II [None]
